FAERS Safety Report 14613934 (Version 2)
Quarter: 2018Q1

REPORT INFORMATION
  Report Type: Spontaneous
  Country: US (occurrence: US)
  Receive Date: 20180308
  Receipt Date: 20180323
  Transmission Date: 20180509
  Serious: Yes (Hospitalization)
  Sender: FDA-Public Use
  Company Number: US-TEVA-2018-US-867307

PATIENT
  Weight: 163 kg

DRUGS (10)
  1. TESTOSTERONE. [Suspect]
     Active Substance: TESTOSTERONE
     Dosage: 5G TRANSDERMAL GEL (1 PACKET TOPICAL EVERY MORNING)
     Route: 061
  2. NORTHERA [Suspect]
     Active Substance: DROXIDOPA
     Dosage: 100MG TIDX2DAYS, 200MGS TIDX2DAYS, 300MG TIDX20AYS, 400MGX2DAYS, 500MG TIDX2SDAYS, 600MG TIDX2DAYS
     Route: 065
  3. ASPIRIN. [Concomitant]
     Active Substance: ASPIRIN
     Dosage: 1 TAB BY MOUTH ONCE A DAY
     Route: 048
  4. PRAVASTATIN. [Concomitant]
     Active Substance: PRAVASTATIN
     Dosage: 1 TAB BY MOUTH ONCE A DAY
     Route: 048
     Dates: start: 20170612
  5. VENLAFAXINE [Concomitant]
     Active Substance: VENLAFAXINE HYDROCHLORIDE
     Dosage: 1 CAPSULE BY MOUTH ONCE A DAY
     Route: 048
     Dates: start: 20170612
  6. CALCIUM ACETATE. [Concomitant]
     Active Substance: CALCIUM ACETATE
     Dosage: 3 CAPSULE BY MOUTH WITH MEALS THREE TIMES A DAY WITH MEALS AND SNACKS
     Route: 048
  7. OMEPRAZOLE. [Concomitant]
     Active Substance: OMEPRAZOLE
     Dosage: 1 CAPSULE BY MOUTH ONCE A DAY
     Dates: start: 20171204
  8. MIDODRINE [Concomitant]
     Active Substance: MIDODRINE
     Dosage: 2 TABLETS BY MOUTH 3 TIMES A DAY
     Route: 048
     Dates: start: 20180126
  9. RENO [Concomitant]
     Dosage: 1 CAPSULE BY MOUTH ONCE A DAY
     Route: 048
  10. WARFARIN [Concomitant]
     Active Substance: WARFARIN
     Dosage: 1 TAB BY MOUTH DAILY FOR 30 DAYS
     Route: 048

REACTIONS (1)
  - Complication associated with device [Unknown]
